FAERS Safety Report 4684366-3 (Version None)
Quarter: 2005Q2

REPORT INFORMATION
  Report Type: 
  Country: None (occurrence: None)
  Receive Date: 20050531
  Receipt Date: 20040803
  Transmission Date: 20051028
  Serious: Yes (Other)
  Sender: FDA-Public Use
  Company Number: 200415884US

PATIENT
  Age: 49 Year
  Sex: Female

DRUGS (5)
  1. LOVENOX [Suspect]
     Indication: ASPIRATION PLEURAL CAVITY
     Dosage: 60 MG BID
  2. LOVENOX [Suspect]
     Indication: THROMBOSIS PROPHYLAXIS
     Dosage: 60 MG BID
  3. THYROID TAB [Concomitant]
  4. PAIN MEDICATIONS NOS [Concomitant]
  5. CHEMOTHERAPY [Concomitant]
     Dates: start: 20040701, end: 20040701

REACTIONS (1)
  - THROMBOCYTOPENIA [None]
